FAERS Safety Report 17176831 (Version 1)
Quarter: 2019Q4

REPORT INFORMATION
  Report Type: Report from Study
  Country: BR (occurrence: BR)
  Receive Date: 20191219
  Receipt Date: 20191219
  Transmission Date: 20200122
  Serious: Yes (Other)
  Sender: FDA-Public Use
  Company Number: ALC2019BR002168

PATIENT
  Age: 55 Year
  Sex: Female
  Weight: 65 kg

DRUGS (8)
  1. DIOVAN [Suspect]
     Active Substance: VALSARTAN
     Indication: HYPERTENSION
     Dosage: 320 MG, QD 1 TABLET
     Route: 048
  2. VITALUX PLUS OMEGA [Suspect]
     Active Substance: MINERALS\OMEGA-3 FATTY ACIDS\VITAMINS
     Indication: PRODUCT USED FOR UNKNOWN INDICATION
     Route: 065
  3. NEOVIT [Concomitant]
     Indication: PRODUCT USED FOR UNKNOWN INDICATION
     Dosage: UNK
     Route: 065
  4. ATENSINA [Suspect]
     Active Substance: CLONIDINE
     Indication: HYPERTENSION
     Dosage: 3 TABLETS (50 MG), QD
     Route: 048
  5. DIOVAN [Suspect]
     Active Substance: VALSARTAN
     Dosage: 160 UNK
     Route: 065
  6. NATRILIX LP [Suspect]
     Active Substance: INDAPAMIDE
     Indication: HYPERTENSION
     Dosage: 1 TABLET (10 MG), QD
     Route: 048
  7. BENICAR ANLO [Suspect]
     Active Substance: AMLODIPINE BESYLATE\OLMESARTAN MEDOXOMIL
     Indication: HYPERTENSION
     Dosage: 40/5 MG
     Route: 065
     Dates: end: 20191121
  8. LOSARTAN POTASSIUM. [Suspect]
     Active Substance: LOSARTAN POTASSIUM
     Indication: HYPERTENSION
     Dosage: 2 TABLETS (50 MG), QD
     Route: 048

REACTIONS (11)
  - Pain in extremity [Unknown]
  - Drug ineffective [Unknown]
  - Maculopathy [Not Recovered/Not Resolved]
  - Headache [Recovered/Resolved]
  - Visual impairment [Not Recovered/Not Resolved]
  - Blood pressure increased [Recovered/Resolved]
  - Peripheral swelling [Unknown]
  - Corneal lesion [Unknown]
  - Retinal vein thrombosis [Recovered/Resolved]
  - Hypertension [Unknown]
  - Blood pressure abnormal [Unknown]
